FAERS Safety Report 17224527 (Version 2)
Quarter: 2020Q1

REPORT INFORMATION
  Report Type: Spontaneous
  Country: US (occurrence: US)
  Receive Date: 20200102
  Receipt Date: 20200106
  Transmission Date: 20200409
  Serious: Yes (Other)
  Sender: FDA-Public Use
  Company Number: NVSC2019US082381

PATIENT
  Age: 73 Year
  Sex: Female

DRUGS (3)
  1. TRIESENCE [Suspect]
     Active Substance: TRIAMCINOLONE ACETONIDE
     Indication: VITRECTOMY
  2. TRIESENCE [Suspect]
     Active Substance: TRIAMCINOLONE ACETONIDE
     Indication: CATARACT NUCLEAR
     Dosage: 4 MG
     Route: 031
  3. TRIESENCE [Suspect]
     Active Substance: TRIAMCINOLONE ACETONIDE
     Indication: MACULAR FIBROSIS

REACTIONS (2)
  - Rhegmatogenous retinal detachment [Recovered/Resolved]
  - Product use in unapproved indication [Unknown]
